FAERS Safety Report 6037718-3 (Version None)
Quarter: 2009Q1

REPORT INFORMATION
  Report Type: 
  Country: None (occurrence: None)
  Receive Date: 20090113
  Receipt Date: 20090106
  Transmission Date: 20090719
  Serious: Yes (Other)
  Sender: FDA-Public Use
  Company Number: TRP_05984_2008

PATIENT
  Sex: Female

DRUGS (3)
  1. RIBASPHERE [Suspect]
     Indication: HEPATITIS C
     Dosage: 1200 MG
     Dates: start: 20070928, end: 20080604
  2. PEGASYS [Suspect]
     Indication: HEPATITIS C
     Dosage: 180 MCG
     Dates: start: 20070928, end: 20080604
  3. PROCRIT [Suspect]
     Indication: HAEMOGLOBIN ABNORMAL

REACTIONS (16)
  - ASTHENIA [None]
  - DECREASED APPETITE [None]
  - DIABETES MELLITUS INADEQUATE CONTROL [None]
  - DISEASE RECURRENCE [None]
  - DRUG DOSE OMISSION [None]
  - DRUG EFFECT DECREASED [None]
  - DRUG INEFFECTIVE [None]
  - FATIGUE [None]
  - HAEMOGLOBIN ABNORMAL [None]
  - HEPATITIS C [None]
  - HYPERTENSION [None]
  - LARYNGITIS [None]
  - LETHARGY [None]
  - OCULAR HYPERAEMIA [None]
  - PAIN [None]
  - VISION BLURRED [None]
